FAERS Safety Report 16968078 (Version 1)
Quarter: 2019Q4

REPORT INFORMATION
  Report Type: Spontaneous
  Country: GB (occurrence: GB)
  Receive Date: 20191028
  Receipt Date: 20191028
  Transmission Date: 20200122
  Serious: Yes (Other)
  Sender: FDA-Public Use
  Company Number: GB-ALLERGAN-1942702US

PATIENT
  Sex: Female
  Weight: 6 kg

DRUGS (1)
  1. ALPHAGAN P [Suspect]
     Active Substance: BRIMONIDINE TARTRATE
     Indication: PUPILS UNEQUAL
     Dosage: ONE IN EACH EYE
     Route: 047

REACTIONS (5)
  - Somnolence [Recovered/Resolved]
  - Contraindicated product administered [Unknown]
  - Respiratory depression [Recovered/Resolved]
  - Sedation [Recovered/Resolved]
  - Hypopnoea [Recovered/Resolved]
